FAERS Safety Report 5802388-3 (Version None)
Quarter: 2008Q3

REPORT INFORMATION
  Report Type: 
  Country: None (occurrence: None)
  Receive Date: 20080707
  Receipt Date: 20080627
  Transmission Date: 20090109
  Serious: Yes (Disabling, Other)
  Sender: FDA-Public Use
  Company Number: US-MERCK-0802USA00106

PATIENT
  Age: 71 Year
  Sex: Female

DRUGS (3)
  1. FOSAMAX [Suspect]
     Route: 048
     Dates: start: 20020101, end: 20060101
  2. FOSAMAX [Suspect]
     Route: 048
     Dates: start: 19900101, end: 20020101
  3. FOSAMAX [Suspect]
     Route: 048
     Dates: start: 19900101, end: 20020101

REACTIONS (10)
  - BONE EROSION [None]
  - FIBROMA [None]
  - HIP ARTHROPLASTY [None]
  - HYSTERECTOMY [None]
  - MUCOSAL INFLAMMATION [None]
  - NECROSIS [None]
  - OSTEOMYELITIS [None]
  - PAIN IN JAW [None]
  - RASH [None]
  - SKIN CANCER [None]
